FAERS Safety Report 19837079 (Version 3)
Quarter: 2021Q4

REPORT INFORMATION
  Report Type: Spontaneous
  Country: NL (occurrence: FR)
  Receive Date: 20210915
  Receipt Date: 20211014
  Transmission Date: 20220303
  Serious: Yes (Hospitalization)
  Sender: FDA-Public Use
  Company Number: None

PATIENT
  Age: 18 Year
  Sex: Male
  Weight: 58 kg

DRUGS (8)
  1. GEMCITABINE [Suspect]
     Active Substance: GEMCITABINE
     Indication: Hodgkin^s disease nodular sclerosis recurrent
     Dosage: 1400 MG, PER DAY
     Route: 041
     Dates: start: 20210719, end: 20210722
  2. SULFAMETHOXAZOLE\TRIMETHOPRIM [Suspect]
     Active Substance: SULFAMETHOXAZOLE\TRIMETHOPRIM
     Indication: Infection prophylaxis
     Dosage: 2400 MG, WEEKLY (800 MGX3/WEEK)
     Route: 048
     Dates: start: 20200831, end: 20210727
  3. IFOSFAMIDE [Suspect]
     Active Substance: IFOSFAMIDE
     Indication: Hodgkin^s disease nodular sclerosis recurrent
     Dosage: HOLOXAN 2000 MG, POWDER FOR PARENTERAL USE?3500 MG, PER DAY
     Route: 041
     Dates: start: 20210719, end: 20210722
  4. VINORELBINE TARTRATE [Suspect]
     Active Substance: VINORELBINE TARTRATE
     Indication: Hodgkin^s disease nodular sclerosis recurrent
     Dosage: NAVELBINE (VINORELBINE TARTRATE)?30 MG, CYCLICAL
     Route: 041
     Dates: start: 20210719, end: 20210719
  5. VINORELBINE TARTRATE [Suspect]
     Active Substance: VINORELBINE TARTRATE
     Indication: Off label use
     Dosage: NAVELBINE (VINORELBINE TARTRATE)
     Route: 065
  6. ALIZAPRIDE HYDROCHLORIDE [Concomitant]
     Active Substance: ALIZAPRIDE HYDROCHLORIDE
     Indication: Prophylaxis of nausea and vomiting
     Dosage: 50 MG, TID (3/DAY) (EVERY 8 HOURS)
     Route: 042
     Dates: start: 20210719, end: 20210723
  7. APREPITANT [Concomitant]
     Active Substance: APREPITANT
     Indication: Prophylaxis of nausea and vomiting
     Dosage: 125 MG, PER DAY
     Route: 048
     Dates: start: 20210719, end: 20210719
  8. APREPITANT [Concomitant]
     Active Substance: APREPITANT
     Dosage: 80 MG, PER DAY
     Route: 048
     Dates: start: 20210720, end: 20210722

REACTIONS (3)
  - Product use in unapproved indication [Unknown]
  - Off label use [Unknown]
  - Dermatitis [Recovering/Resolving]

NARRATIVE: CASE EVENT DATE: 20210723
